FAERS Safety Report 8927365 (Version 1)
Quarter: 2012Q4

REPORT INFORMATION
  Report Type: 
  Country: NL (occurrence: NL)
  Receive Date: 20121127
  Receipt Date: 20121127
  Transmission Date: 20130627
  Serious: Yes (Hospitalization)
  Sender: FDA-Public Use
  Company Number: PHHY2012NL095858

PATIENT
  Age: 42 Year
  Sex: Male

DRUGS (3)
  1. GILENYA [Suspect]
     Indication: SECONDARY PROGRESSIVE MULTIPLE SCLEROSIS
     Dosage: 0.5 mg, QD
     Route: 048
     Dates: start: 20120919, end: 20121015
  2. SIRDALUD [Concomitant]
     Dosage: 2 DF, daily
  3. FAMPRIDINE [Concomitant]
     Dosage: 2 DF, daily

REACTIONS (1)
  - Limb discomfort [Recovering/Resolving]
